FAERS Safety Report 10896666 (Version 1)
Quarter: 2015Q1

REPORT INFORMATION
  Report Type: Spontaneous
  Country: JP (occurrence: None)
  Receive Date: 20150302
  Receipt Date: 20150302
  Transmission Date: 20150721
  Serious: Yes (Other)
  Sender: FDA-Public Use
  Company Number: 2015BCR00025

PATIENT
  Age: 82 Year
  Sex: Female

DRUGS (5)
  1. LUCIDRIL (MECLOFENOXATE HYDROCHLORIDE) [Concomitant]
  2. RAPIACTA [Suspect]
     Active Substance: PERAMIVIR
     Indication: INFLUENZA
     Route: 042
     Dates: start: 20150126, end: 20150126
  3. NICERGOLINE [Concomitant]
     Active Substance: NICERGOLINE
  4. BLOPRESS (CANDESARTAN CILEXITEL) [Concomitant]
  5. SENNOSIDE [Concomitant]
     Active Substance: SENNOSIDES

REACTIONS (1)
  - Loss of consciousness [None]

NARRATIVE: CASE EVENT DATE: 20150126
